FAERS Safety Report 12548476 (Version 1)
Quarter: 2016Q3

REPORT INFORMATION
  Report Type: Report from Study
  Country: DE (occurrence: DE)
  Receive Date: 20160712
  Receipt Date: 20160712
  Transmission Date: 20161109
  Serious: Yes (Hospitalization)
  Sender: FDA-Public Use
  Company Number: DE-ROCHE-1791369

PATIENT
  Age: 12 Year
  Sex: Female

DRUGS (1)
  1. GANCICLOVIR. [Suspect]
     Active Substance: GANCICLOVIR
     Indication: CYTOMEGALOVIRUS INFECTION
     Dosage: 55.56 MG/KG AND TREATMENT PERIOD 97.
     Route: 065

REACTIONS (1)
  - Agranulocytosis [Recovered/Resolved]
